FAERS Safety Report 6986047-X (Version None)
Quarter: 2010Q3

REPORT INFORMATION
  Report Type: 
  Country: None (occurrence: None)
  Receive Date: 20100915
  Receipt Date: 20100910
  Transmission Date: 20110219
  Serious: Yes (Other)
  Sender: FDA-Public Use
  Company Number: US-MERCK-1006USA02947

PATIENT
  Age: 60 Year
  Sex: Male

DRUGS (4)
  1. PROPECIA [Suspect]
     Route: 048
     Dates: start: 20050801
  2. FLOMAX [Concomitant]
     Route: 065
  3. CIPRO [Concomitant]
     Route: 065
     Dates: start: 20090101
  4. AVODART [Concomitant]
     Route: 065

REACTIONS (1)
  - PROSTATE CANCER [None]
